FAERS Safety Report 8499209-X (Version None)
Quarter: 2012Q2

REPORT INFORMATION
  Report Type: 
  Country: None (occurrence: None)
  Receive Date: 20120612
  Receipt Date: 20120529
  Transmission Date: 20120825
  Serious: Yes (Death, Hospitalization)
  Sender: FDA-Public Use
  Company Number: 2012PROUSA01366

PATIENT
  Age: 59 Year
  Sex: Male
  Weight: 77.1 kg

DRUGS (23)
  1. ESTER E (TOCOPHEROL) CAPSULE [Concomitant]
  2. TRAMADOL HCL (TRAMADOL HYDROCHLORIDE) TABLET [Concomitant]
  3. MULTIVITAMIN /00097801/ (ASCORBIC ACID, CALCIUM PANTOTHENATE, ERGOCALC [Concomitant]
  4. TYLENOL /00020001/ (PARACETAMOL) TABLET [Concomitant]
  5. FENTANYL [Concomitant]
  6. CHOLECALCIFEROL (COLECALCIFEROL) CAPSULE [Concomitant]
  7. FLUOXETINE (FLUOXETINE) CAPSULE [Concomitant]
  8. CASODEX (BICALUTAMIDE) TABLET [Concomitant]
  9. B COMPLEX /02128201/ (BIOTIN, CALCIUM PANTOTHENATE, CHOLINE BITARTRATE [Concomitant]
  10. LORAZEPAM [Concomitant]
  11. ZOFRAN /00955301/ )ONDANSETRON) [Concomitant]
  12. PROVENGE [Suspect]
     Indication: PROSTATE CANCER METASTATIC
     Dosage: 250 ML, SINGLE, INTRAVENOUS
     Route: 042
     Dates: start: 20120419, end: 20120419
  13. ESGIC-PLUS (BUTALBITAL, CAFFEINE, PARACETAMOL) [Concomitant]
  14. BUSPAR (BUSPIRONE HYDROCHLORIDE) TABLET [Concomitant]
  15. MICRO-K (POTASSIUM CHLORIDE) CAPSULE [Concomitant]
  16. MS CONTIN [Concomitant]
  17. DILTIAZEM [Concomitant]
  18. KETOCONAZOLE (KETOCONAZOLE) TABLET [Concomitant]
  19. PERCOCET [Concomitant]
  20. AMLODIPINE BESYLATE [Concomitant]
  21. NITROGLYCERIN [Concomitant]
  22. CHLORDIAZEPOXIDE W/CLIDINIUM (CHLORDIAZEPOXIDE, CLIDINIUM) CAPSULE [Concomitant]
  23. CALCIUM MAGNESIUM ZINC (CALCIUM, MAGNESIUM, ZINC) TABLET [Concomitant]

REACTIONS (16)
  - LETHARGY [None]
  - PROSTATE CANCER [None]
  - NAUSEA [None]
  - VOMITING [None]
  - SOMNOLENCE [None]
  - PYREXIA [None]
  - DIZZINESS [None]
  - DISEASE PROGRESSION [None]
  - CHILLS [None]
  - HEADACHE [None]
  - ASTHENIA [None]
  - ARTHRALGIA [None]
  - MUSCULOSKELETAL STIFFNESS [None]
  - HYPERHIDROSIS [None]
  - CHEST PAIN [None]
  - BACK PAIN [None]
